FAERS Safety Report 4612148-7 (Version None)
Quarter: 2005Q1

REPORT INFORMATION
  Report Type: 
  Country: None (occurrence: None)
  Receive Date: 20050308
  Receipt Date: 20041124
  Transmission Date: 20050727
  Serious: Yes (Other)
  Sender: FDA-Public Use
  Company Number: 2004UW24270

PATIENT
  Age: 72 Year
  Sex: Female
  Weight: 62.595 kg

DRUGS (2)
  1. CRESTOR [Suspect]
     Indication: BLOOD CHOLESTEROL INCREASED
     Dosage: 10 MG PO
     Route: 048
     Dates: start: 20041001
  2. FOSAMAX [Concomitant]

REACTIONS (6)
  - COUGH [None]
  - DIZZINESS [None]
  - DRY SKIN [None]
  - ILL-DEFINED DISORDER [None]
  - PRURITUS [None]
  - RASH MACULAR [None]
